FAERS Safety Report 5096849-5 (Version None)
Quarter: 2006Q3

REPORT INFORMATION
  Report Type: 
  Country: None (occurrence: None)
  Receive Date: 20060901
  Receipt Date: 20060901
  Transmission Date: 20061208
  Serious: Yes (Disabling)
  Sender: FDA-Public Use
  Company Number: None

PATIENT
  Age: 68 Year
  Sex: Male
  Weight: 142 kg

DRUGS (1)
  1. LIPITOR [Suspect]

REACTIONS (7)
  - LEG AMPUTATION [None]
  - OEDEMA PERIPHERAL [None]
  - SKIN DISORDER [None]
  - SKIN LESION [None]
  - SOFT TISSUE DISORDER [None]
  - THERAPY NON-RESPONDER [None]
  - VASCULITIC RASH [None]
